FAERS Safety Report 9555752 (Version 2)
Quarter: 2014Q2

REPORT INFORMATION
  Report Type: Spontaneous
  Country: US (occurrence: US)
  Receive Date: 20130926
  Receipt Date: 20140414
  Transmission Date: 20141212
  Serious: Yes (Life-Threatening, Hospitalization)
  Sender: FDA-Public Use
  Company Number: US-BAYER-2013-115570

PATIENT
  Age: 18 Year
  Sex: Female

DRUGS (19)
  1. YASMIN [Suspect]
  2. YAZ [Suspect]
  3. OCELLA [Suspect]
  4. GIANVI [Suspect]
  5. SAFYRAL [Suspect]
  6. BEYAZ [Suspect]
  7. ZOFRAN [Concomitant]
     Dosage: UNK
     Dates: start: 20030625
  8. ZOFRAN [Concomitant]
     Dosage: 4 MG, UNK
     Dates: start: 20030710
  9. ADVIL [IBUPROFEN] [Concomitant]
     Indication: HEADACHE
  10. MOTRIN [Concomitant]
     Indication: HEADACHE
  11. ROBITUSSIN DAC [Concomitant]
     Indication: UPPER RESPIRATORY TRACT INFECTION
     Dosage: UNK, [TWO] TEASPOONS
     Dates: start: 20030701
  12. GUIATUSS DAC [Concomitant]
     Dosage: UNK
     Dates: start: 20030701
  13. DEXAMETHASONE [DEXAMETHASONE] [Concomitant]
     Dosage: 4 MG, UNK
     Dates: start: 20030710
  14. DOXEPIN [Concomitant]
     Dosage: UNK
     Dates: start: 20030710
  15. TOPAMAX [Concomitant]
     Dosage: 25 [UNITS NOT NOTED]
     Dates: start: 20030725
  16. AMERGE [Concomitant]
     Dosage: 2.5 [UNITED NOT NOTED]
     Dates: start: 20030812
  17. AUGMENTIN [Concomitant]
     Indication: EAR PAIN
  18. ATIVAN [Concomitant]
     Indication: ANXIETY
  19. VICODIN [Concomitant]
     Indication: PAIN

REACTIONS (8)
  - Pulmonary embolism [Recovering/Resolving]
  - Injury [Recovering/Resolving]
  - Pain [None]
  - General physical health deterioration [Recovering/Resolving]
  - Anxiety [None]
  - Anhedonia [None]
  - Emotional distress [None]
  - Pain [Recovering/Resolving]
